FAERS Safety Report 8402810-2 (Version None)
Quarter: 2012Q2

REPORT INFORMATION
  Report Type: 
  Country: None (occurrence: None)
  Receive Date: 20120601
  Receipt Date: 20120524
  Transmission Date: 20120825
  Serious: Yes (Hospitalization)
  Sender: FDA-Public Use
  Company Number: US-ABBOTT-12P-163-0939047-00

PATIENT
  Sex: Male

DRUGS (3)
  1. HUMIRA [Suspect]
     Indication: JUVENILE ARTHRITIS
     Dates: start: 20110101, end: 20110101
  2. HUMIRA [Suspect]
     Dates: start: 20120101
  3. HUMIRA [Suspect]
     Dates: start: 20110101, end: 20110101

REACTIONS (3)
  - MALAISE [None]
  - RASH ERYTHEMATOUS [None]
  - ARTHRITIS [None]
